FAERS Safety Report 10716334 (Version 1)
Quarter: 2015Q1

REPORT INFORMATION
  Report Type: Spontaneous
  Country: FR (occurrence: FR)
  Receive Date: 20150116
  Receipt Date: 20150116
  Transmission Date: 20150721
  Serious: Yes (Life-Threatening, Hospitalization)
  Sender: FDA-Public Use
  Company Number: FR-SA-2014SA158647

PATIENT
  Age: 56 Year
  Sex: Female
  Weight: 57 kg

DRUGS (4)
  1. LANTUS SOLOSTAR [Suspect]
     Active Substance: INSULIN GLARGINE
     Indication: TYPE 1 DIABETES MELLITUS
     Dosage: DECREASED TO 18 MORNING AND 16 EVENING
     Route: 058
     Dates: start: 2012
  2. NOVORAPID [Concomitant]
     Active Substance: INSULIN ASPART
     Indication: TYPE 1 DIABETES MELLITUS
     Dosage: 4 TO 6 IU IN THE MORNING AND AS NEEDED IN THE EVENING
     Route: 058
  3. SOLOSTAR [Concomitant]
     Active Substance: DEVICE
     Indication: TYPE 1 DIABETES MELLITUS
     Dates: start: 2012
  4. IBGSTAR METER [Suspect]
     Active Substance: DEVICE
     Indication: DEVICE THERAPY
     Dosage: 6-8 TIMES A DAY

REACTIONS (6)
  - Drug administration error [Unknown]
  - Incorrect product storage [Unknown]
  - Head injury [Recovering/Resolving]
  - Hypoglycaemia [Recovered/Resolved]
  - Loss of consciousness [Recovered/Resolved]
  - Hypoglycaemic coma [Unknown]

NARRATIVE: CASE EVENT DATE: 2012
